FAERS Safety Report 7876929-9 (Version None)
Quarter: 2011Q4

REPORT INFORMATION
  Report Type: 
  Country: None (occurrence: None)
  Receive Date: 20111031
  Receipt Date: 20111026
  Transmission Date: 20120403
  Serious: Yes (Life-Threatening, Hospitalization)
  Sender: FDA-Public Use
  Company Number: CN-ASTRAZENECA-2011SE63138

PATIENT
  Age: 41 Year
  Sex: Female

DRUGS (2)
  1. LIDOCAINE [Suspect]
     Indication: LOCAL ANAESTHESIA
     Route: 065
     Dates: start: 20040215, end: 20040215
  2. ADRENALINE HYDROCHLORIDE [Concomitant]
     Indication: LOCAL ANAESTHESIA
     Dates: start: 20040215

REACTIONS (2)
  - MYALGIA [None]
  - ANAPHYLACTIC SHOCK [None]
